FAERS Safety Report 6453210-6 (Version None)
Quarter: 2009Q4

REPORT INFORMATION
  Report Type: 
  Country: None (occurrence: None)
  Receive Date: 20091123
  Receipt Date: 20091123
  Transmission Date: 20100525
  Serious: Yes (Hospitalization)
  Sender: FDA-Public Use
  Company Number: None

PATIENT
  Age: 34 Year
  Sex: Female
  Weight: 65.318 kg

DRUGS (1)
  1. PLAN B ONE-STEP [Suspect]
     Dosage: ONE PILL ONCE; TOOK ONE PILL ONLY

REACTIONS (2)
  - HAEMORRHAGE [None]
  - THROMBOSIS [None]
